FAERS Safety Report 10290486 (Version 1)
Quarter: 2014Q3

REPORT INFORMATION
  Report Type: Spontaneous
  Country: US (occurrence: None)
  Receive Date: 20140707
  Receipt Date: 20140707
  Transmission Date: 20150326
  Serious: Yes (Hospitalization)
  Sender: FDA-Public Use
  Company Number: None

PATIENT
  Age: 77 Year
  Sex: Male
  Weight: 80.8 kg

DRUGS (6)
  1. MEROPENEM. [Concomitant]
     Active Substance: MEROPENEM
  2. CEFTRIAXONE. [Concomitant]
     Active Substance: CEFTRIAXONE
  3. AZITHROMYCIN [Concomitant]
     Active Substance: AZITHROMYCIN ANHYDROUS
  4. LEVOFLOXACIN [Concomitant]
     Active Substance: LEVOFLOXACIN
  5. VANCOMYCIN [Concomitant]
     Active Substance: VANCOMYCIN
  6. RIVAROXABAN [Suspect]
     Active Substance: RIVAROXABAN
     Indication: ANTIPHOSPHOLIPID SYNDROME
     Route: 048
     Dates: start: 20140415, end: 20140613

REACTIONS (7)
  - Hepatic necrosis [None]
  - Blood creatinine increased [None]
  - Blood bilirubin increased [None]
  - Eosinophil count increased [None]
  - Drug reaction with eosinophilia and systemic symptoms [None]
  - Rash morbilliform [None]
  - Alanine aminotransferase increased [None]

NARRATIVE: CASE EVENT DATE: 20140613
